FAERS Safety Report 6327815-7 (Version None)
Quarter: 2009Q3

REPORT INFORMATION
  Report Type: 
  Country: None (occurrence: None)
  Receive Date: 20090824
  Receipt Date: 20090813
  Transmission Date: 20100115
  Serious: Yes (Death, Other)
  Sender: FDA-Public Use
  Company Number: 2008-03011

PATIENT
  Age: 67 Year
  Sex: Male
  Weight: 63 kg

DRUGS (8)
  1. VELCADE [Suspect]
     Indication: MULTIPLE MYELOMA
     Dosage: 1.5 MG, INTRAVENOUS; 1.9 MG, INTRAVENOUS
     Route: 042
     Dates: start: 20071030, end: 20071109
  2. VELCADE [Suspect]
     Indication: MULTIPLE MYELOMA
     Dosage: 1.5 MG, INTRAVENOUS; 1.9 MG, INTRAVENOUS
     Route: 042
     Dates: start: 20071120, end: 20071130
  3. OXYCODONE HCL [Suspect]
     Indication: DRUG USE FOR UNKNOWN INDICATION
     Dosage: 20 MG, ORAL; 10 MG, ORAL
     Route: 048
     Dates: start: 20071126, end: 20071128
  4. OXYCODONE HCL [Suspect]
     Indication: DRUG USE FOR UNKNOWN INDICATION
     Dosage: 20 MG, ORAL; 10 MG, ORAL
     Route: 048
     Dates: start: 20071129
  5. DEXAMETHASONE [Concomitant]
  6. PLATELETS [Concomitant]
  7. RED BLOOD CELLS [Concomitant]
  8. ZOMETA [Concomitant]

REACTIONS (6)
  - BLOOD LACTATE DEHYDROGENASE INCREASED [None]
  - DISEASE PROGRESSION [None]
  - DYSPHONIA [None]
  - DYSURIA [None]
  - PNEUMONIA [None]
  - SCIATICA [None]
